FAERS Safety Report 16420315 (Version 4)
Quarter: 2019Q3

REPORT INFORMATION
  Report Type: Report from Study
  Country: US (occurrence: US)
  Receive Date: 20190612
  Receipt Date: 20190917
  Transmission Date: 20191004
  Serious: Yes (Hospitalization, Other)
  Sender: FDA-Public Use
  Company Number: PHEH2019US024393

PATIENT
  Sex: Female

DRUGS (1)
  1. ENTRESTO [Suspect]
     Active Substance: SACUBITRIL\VALSARTAN
     Indication: PRODUCT USED FOR UNKNOWN INDICATION
     Dosage: UNK
     Route: 065

REACTIONS (8)
  - Neuropathy peripheral [Unknown]
  - Renal disorder [Unknown]
  - Deafness [Unknown]
  - Chronic obstructive pulmonary disease [Unknown]
  - Rib fracture [Unknown]
  - Urinary tract infection [Unknown]
  - Cardiac failure congestive [Unknown]
  - Gastrooesophageal reflux disease [Unknown]
